FAERS Safety Report 22204018 (Version 2)
Quarter: 2023Q2

REPORT INFORMATION
  Report Type: Report from Study
  Country: US (occurrence: US)
  Receive Date: 20230412
  Receipt Date: 20230413
  Transmission Date: 20230722
  Serious: Yes (Other)
  Sender: FDA-Public Use
  Company Number: US-MYLANLABS-2023M1038177

PATIENT

DRUGS (1)
  1. TEMOZOLOMIDE [Suspect]
     Active Substance: TEMOZOLOMIDE
     Indication: Neuroendocrine carcinoma metastatic
     Dosage: 150 MILLIGRAM/SQ. METER, QD, ON DAYS 1-5 OF A 28 DAY CYCLE
     Route: 048

REACTIONS (4)
  - Sepsis [Unknown]
  - Cholecystitis [Unknown]
  - Cholangitis acute [Unknown]
  - Off label use [Unknown]
